FAERS Safety Report 25324571 (Version 1)
Quarter: 2025Q2

REPORT INFORMATION
  Report Type: Spontaneous
  Country: US (occurrence: None)
  Receive Date: 20250515
  Receipt Date: 20250515
  Transmission Date: 20250716
  Serious: Yes (Other)
  Sender: FDA-CTU
  Company Number: None

PATIENT
  Age: 57 Year
  Sex: Female

DRUGS (10)
  1. BIMZELX [Suspect]
     Active Substance: BIMEKIZUMAB-BKZX
     Indication: Psoriatic arthropathy
     Dates: start: 20250430
  2. PREGABALIN [Concomitant]
     Active Substance: PREGABALIN
  3. ATORVASTATIN [Concomitant]
     Active Substance: ATORVASTATIN
  4. OXYCODONE [Concomitant]
     Active Substance: OXYCODONE
  5. METFORMIN [Concomitant]
     Active Substance: METFORMIN HYDROCHLORIDE
  6. MELOXICAM [Concomitant]
     Active Substance: MELOXICAM
  7. AMITRIPTYLINE [Concomitant]
     Active Substance: AMITRIPTYLINE
  8. AMLODIPINE [Concomitant]
     Active Substance: AMLODIPINE BESYLATE
  9. METOPROLOL [Concomitant]
     Active Substance: METOPROLOL
  10. LOSARTAN [Concomitant]
     Active Substance: LOSARTAN

REACTIONS (6)
  - Fatigue [None]
  - Dysphagia [None]
  - Perioral dermatitis [None]
  - Rash erythematous [None]
  - Hypoaesthesia [None]
  - Neuropathy peripheral [None]

NARRATIVE: CASE EVENT DATE: 20250507
